FAERS Safety Report 16411250 (Version 1)
Quarter: 2019Q2

REPORT INFORMATION
  Report Type: Report from Study
  Country: US (occurrence: US)
  Receive Date: 20190610
  Receipt Date: 20190610
  Transmission Date: 20190711
  Serious: Yes (Other)
  Sender: FDA-Public Use
  Company Number: US-SA-2019SA156587

PATIENT
  Age: 77 Year
  Sex: Female
  Weight: 66.21 kg

DRUGS (3)
  1. HYZAAR [Concomitant]
     Active Substance: HYDROCHLOROTHIAZIDE\LOSARTAN POTASSIUM
  2. DRONEDARONE [Suspect]
     Active Substance: DRONEDARONE
     Indication: HYPERTENSION
     Dosage: 400 MG, BID
     Route: 048
  3. XARELTO [Concomitant]
     Active Substance: RIVAROXABAN
     Dosage: 20 MG, QD
     Route: 048

REACTIONS (1)
  - Pulmonary hypertension [Unknown]
